FAERS Safety Report 19450932 (Version 2)
Quarter: 2021Q3

REPORT INFORMATION
  Report Type: Report from Study
  Country: US (occurrence: US)
  Receive Date: 20210622
  Receipt Date: 20210713
  Transmission Date: 20211014
  Serious: Yes (Other)
  Sender: FDA-Public Use
  Company Number: NVSC2021US132326

PATIENT
  Age: 72 Year
  Sex: Female

DRUGS (1)
  1. PIQRAY [Suspect]
     Active Substance: ALPELISIB
     Indication: BREAST CANCER
     Dosage: 300 MG, QD
     Route: 048

REACTIONS (8)
  - Lip swelling [Unknown]
  - Dehydration [Unknown]
  - Tumour marker decreased [Unknown]
  - Swollen tongue [Unknown]
  - Dyspnoea [Unknown]
  - Hyperglycaemia [Unknown]
  - Rash [Unknown]
  - Pharyngeal swelling [Unknown]

NARRATIVE: CASE EVENT DATE: 20210604
